FAERS Safety Report 8425379-5 (Version None)
Quarter: 2012Q2

REPORT INFORMATION
  Report Type: 
  Country: None (occurrence: None)
  Receive Date: 20120605
  Receipt Date: 20120605
  Transmission Date: 20120825
  Serious: Yes (Death)
  Sender: FDA-Public Use
  Company Number: None

PATIENT
  Age: 65 Year
  Sex: Male
  Weight: 94.8 kg

DRUGS (4)
  1. ASPIRIN [Suspect]
     Dosage: ASA DAILY ORALLY
     Route: 048
  2. PLAVIX [Suspect]
     Dosage: PLAVIX 75MG DAILY ORALLY
     Route: 048
  3. PRADAXA [Suspect]
     Indication: ATRIAL FIBRILLATION
     Dosage: ORALLY
     Route: 048
  4. WARFARIN SODIUM [Suspect]
     Dosage: ORALLY
     Route: 048

REACTIONS (6)
  - HYPOTENSION [None]
  - LOSS OF CONSCIOUSNESS [None]
  - COAGULOPATHY [None]
  - HAEMORRHAGE [None]
  - INTERNATIONAL NORMALISED RATIO INCREASED [None]
  - HAEMOGLOBIN DECREASED [None]
